FAERS Safety Report 6691409-4 (Version None)
Quarter: 2010Q2

REPORT INFORMATION
  Report Type: 
  Country: None (occurrence: None)
  Receive Date: 20100422
  Receipt Date: 20100322
  Transmission Date: 20101027
  Serious: No
  Sender: FDA-Public Use
  Company Number: US-BAYER-201013484BCC

PATIENT
  Age: 36 Year
  Sex: Female
  Weight: 63 kg

DRUGS (2)
  1. ALEVE (CAPLET) [Suspect]
     Indication: MALAISE
     Route: 048
     Dates: start: 19990101, end: 19990101
  2. MULTI-VITAMINS [Suspect]
     Indication: VITAMIN SUPPLEMENTATION
     Route: 048
     Dates: start: 20100301

REACTIONS (9)
  - CONSTIPATION [None]
  - DISTURBANCE IN ATTENTION [None]
  - DIZZINESS [None]
  - DYSPNOEA [None]
  - HEADACHE [None]
  - HYPERSENSITIVITY [None]
  - RASH [None]
  - RHINORRHOEA [None]
  - TREMOR [None]
